FAERS Safety Report 16329055 (Version 3)
Quarter: 2019Q2

REPORT INFORMATION
  Report Type: Report from Study
  Country: None (occurrence: US)
  Receive Date: 20190519
  Receipt Date: 20190621
  Transmission Date: 20190711
  Serious: Yes (Hospitalization)
  Sender: FDA-Public Use
  Company Number: US-ABBVIE-19K-163-2783042-00

PATIENT
  Age: 73 Year
  Sex: Female

DRUGS (1)
  1. HUMIRA [Suspect]
     Active Substance: ADALIMUMAB
     Indication: COLITIS ULCERATIVE
     Route: 058
     Dates: start: 2018

REACTIONS (11)
  - Productive cough [Unknown]
  - Therapeutic product effect delayed [Unknown]
  - Colitis ulcerative [Unknown]
  - Lymph gland infection [Recovering/Resolving]
  - Secretion discharge [Unknown]
  - Pruritus [Unknown]
  - Insomnia [Unknown]
  - Cellulitis [Unknown]
  - Skin irritation [Recovering/Resolving]
  - Fatigue [Unknown]
  - Diarrhoea haemorrhagic [Unknown]

NARRATIVE: CASE EVENT DATE: 201905
